FAERS Safety Report 22202968 (Version 1)
Quarter: 2023Q2

REPORT INFORMATION
  Report Type: Spontaneous
  Country: FR (occurrence: FR)
  Receive Date: 20230412
  Receipt Date: 20230412
  Transmission Date: 20230722
  Serious: Yes (Hospitalization, Other)
  Sender: FDA-Public Use
  Company Number: None

PATIENT
  Age: 44 Year
  Sex: Female
  Weight: 99 kg

DRUGS (2)
  1. YERVOY [Suspect]
     Active Substance: IPILIMUMAB
     Indication: Malignant melanoma
     Route: 042
     Dates: start: 20220804, end: 20220804
  2. OPDIVO [Suspect]
     Active Substance: NIVOLUMAB
     Indication: Malignant melanoma
     Route: 042
     Dates: start: 20220804, end: 20220804

REACTIONS (4)
  - Myositis [Recovering/Resolving]
  - Adrenocortical insufficiency acute [Not Recovered/Not Resolved]
  - Myocarditis [Recovering/Resolving]
  - Parotitis [Not Recovered/Not Resolved]

NARRATIVE: CASE EVENT DATE: 20220801
